FAERS Safety Report 24970036 (Version 1)
Quarter: 2025Q1

REPORT INFORMATION
  Report Type: Spontaneous
  Country: US (occurrence: None)
  Receive Date: 20250213
  Receipt Date: 20250213
  Transmission Date: 20250408
  Serious: Yes (Hospitalization, Disabling, Other)
  Sender: FDA-CTU
  Company Number: None

PATIENT
  Age: 46 Year
  Sex: Female
  Weight: 69.75 kg

DRUGS (4)
  1. KETAMINE HYDROCHLORIDE [Suspect]
     Active Substance: KETAMINE HYDROCHLORIDE
     Indication: Complex regional pain syndrome
     Dates: start: 20210602, end: 20221117
  2. VITAMIN D [Concomitant]
     Active Substance: VITAMIN D NOS
  3. DIETARY SUPPLEMENT [Concomitant]
     Active Substance: DIETARY SUPPLEMENT
  4. VITAMINS [Concomitant]
     Active Substance: VITAMINS

REACTIONS (12)
  - Delusion [None]
  - Hallucination, auditory [None]
  - Schizoaffective disorder bipolar type [None]
  - Quality of life decreased [None]
  - Activities of daily living assessment [None]
  - Post-traumatic stress disorder [None]
  - Personality change [None]
  - Memory impairment [None]
  - Compulsive shopping [None]
  - Insomnia [None]
  - Economic problem [None]
  - Legal problem [None]

NARRATIVE: CASE EVENT DATE: 20220202
